FAERS Safety Report 4535748-1 (Version None)
Quarter: 2004Q4

REPORT INFORMATION
  Report Type: 
  Country: None (occurrence: None)
  Receive Date: 20041223
  Receipt Date: 20040202
  Transmission Date: 20050328
  Serious: No
  Sender: FDA-Public Use
  Company Number: US-GLAXOSMITHKLINE-A0496733A

PATIENT
  Age: 3 Year
  Sex: Male

DRUGS (1)
  1. FLONASE [Suspect]
     Indication: ILL-DEFINED DISORDER
     Route: 045

REACTIONS (2)
  - BLOOD PRESSURE INCREASED [None]
  - HEART RATE INCREASED [None]
